FAERS Safety Report 16815793 (Version 2)
Quarter: 2019Q4

REPORT INFORMATION
  Report Type: Report from Study
  Country: US (occurrence: US)
  Receive Date: 20190917
  Receipt Date: 20191223
  Transmission Date: 20200122
  Serious: No
  Sender: FDA-Public Use
  Company Number: PHEH2019US038170

PATIENT
  Age: 33 Year
  Sex: Female

DRUGS (1)
  1. GILENYA [Suspect]
     Active Substance: FINGOLIMOD HYDROCHLORIDE
     Indication: MULTIPLE SCLEROSIS
     Dosage: 0.5 MG, QD
     Route: 048
     Dates: start: 20180313

REACTIONS (5)
  - Migraine [Unknown]
  - Pyrexia [Unknown]
  - Tremor [Recovering/Resolving]
  - Fatigue [Unknown]
  - Influenza [Unknown]

NARRATIVE: CASE EVENT DATE: 20191215
